FAERS Safety Report 8336064-2 (Version None)
Quarter: 2012Q2

REPORT INFORMATION
  Report Type: 
  Country: None (occurrence: None)
  Receive Date: 20120501
  Receipt Date: 20120501
  Transmission Date: 20120825
  Serious: Yes (Hospitalization)
  Sender: FDA-Public Use
  Company Number: None

PATIENT
  Age: 63 Year
  Sex: Female
  Weight: 45.9 kg

DRUGS (3)
  1. MAXZIDE [Concomitant]
  2. NAPROSYN [Suspect]
     Indication: KNEE OPERATION
     Dosage: 500MG BID PO RECENT
     Route: 048
  3. LISINOPRIL [Concomitant]

REACTIONS (4)
  - HIATUS HERNIA [None]
  - UPPER GASTROINTESTINAL HAEMORRHAGE [None]
  - ANAEMIA [None]
  - GASTRITIS [None]
